FAERS Safety Report 7597046 (Version 4)
Quarter: 2016Q3

REPORT INFORMATION
  Report Type: Spontaneous
  Country: US (occurrence: US)
  Receive Date: 20100920
  Receipt Date: 20160928
  Transmission Date: 20161109
  Serious: Yes (Other)
  Sender: FDA-Public Use
  Company Number: US-ASTRAZENECA-2005UW00419

PATIENT
  Age: 59 Year
  Sex: Female
  Weight: 77.1 kg

DRUGS (28)
  1. SEROQUEL [Suspect]
     Active Substance: QUETIAPINE FUMARATE
     Indication: SCHIZOPHRENIA
     Route: 048
     Dates: start: 200408
  2. SEROQUEL [Suspect]
     Active Substance: QUETIAPINE FUMARATE
     Indication: HALLUCINATION
     Route: 048
     Dates: start: 2004
  3. RISPERDAL [Concomitant]
     Active Substance: RISPERIDONE
     Indication: SEDATION
     Dosage: 3.0MG UNKNOWN
     Route: 048
     Dates: start: 1995
  4. SERTRALINE [Concomitant]
     Active Substance: SERTRALINE HYDROCHLORIDE
  5. RISPERDAL [Concomitant]
     Active Substance: RISPERIDONE
     Indication: PSYCHOTIC DISORDER
     Dosage: 3.0MG UNKNOWN
     Route: 048
     Dates: start: 1995
  6. SEROQUEL [Suspect]
     Active Substance: QUETIAPINE FUMARATE
     Indication: HALLUCINATION
     Route: 048
     Dates: start: 200408
  7. SEROQUEL [Suspect]
     Active Substance: QUETIAPINE FUMARATE
     Indication: ANXIETY
     Route: 048
     Dates: start: 200408
  8. SEROQUEL [Suspect]
     Active Substance: QUETIAPINE FUMARATE
     Indication: HALLUCINATION
     Dosage: 200 MG IN THE MORNING, 400 MG AT AFTERNOON
     Route: 048
     Dates: start: 2004
  9. SEROQUEL [Suspect]
     Active Substance: QUETIAPINE FUMARATE
     Indication: SCHIZOPHRENIA
     Route: 048
     Dates: start: 2011
  10. SEROQUEL [Suspect]
     Active Substance: QUETIAPINE FUMARATE
     Indication: HALLUCINATION
     Route: 048
     Dates: start: 2011
  11. RISPERDAL [Concomitant]
     Active Substance: RISPERIDONE
     Indication: SEDATION
     Route: 048
  12. RISPERDAL [Concomitant]
     Active Substance: RISPERIDONE
     Indication: PSYCHOTIC DISORDER
     Route: 048
  13. PAXIL [Concomitant]
     Active Substance: PAROXETINE HYDROCHLORIDE
     Indication: DEPRESSION
     Route: 048
  14. SEROQUEL [Suspect]
     Active Substance: QUETIAPINE FUMARATE
     Indication: HALLUCINATION, AUDITORY
     Route: 048
     Dates: start: 2011
  15. SEROQUEL [Suspect]
     Active Substance: QUETIAPINE FUMARATE
     Indication: ANXIETY
     Route: 048
     Dates: start: 2004
  16. IBUPROFEN. [Concomitant]
     Active Substance: IBUPROFEN
  17. VITAMINS [Concomitant]
     Active Substance: VITAMINS
  18. ZOLOFT [Concomitant]
     Active Substance: SERTRALINE HYDROCHLORIDE
     Indication: DEPRESSION
  19. SEROQUEL [Suspect]
     Active Substance: QUETIAPINE FUMARATE
     Indication: HALLUCINATION, AUDITORY
     Route: 048
     Dates: start: 200408
  20. SEROQUEL [Suspect]
     Active Substance: QUETIAPINE FUMARATE
     Indication: ANXIETY
     Route: 048
     Dates: start: 2011
  21. RISPERDAL [Concomitant]
     Active Substance: RISPERIDONE
     Indication: SEDATION
     Route: 048
  22. RISPERDAL [Concomitant]
     Active Substance: RISPERIDONE
     Indication: PSYCHOTIC DISORDER
     Route: 048
  23. PAXIL [Concomitant]
     Active Substance: PAROXETINE HYDROCHLORIDE
     Indication: DEPRESSION
     Route: 048
     Dates: start: 2004
  24. SEROQUEL [Suspect]
     Active Substance: QUETIAPINE FUMARATE
     Indication: SCHIZOPHRENIA
     Route: 048
     Dates: start: 2004
  25. SEROQUEL [Suspect]
     Active Substance: QUETIAPINE FUMARATE
     Indication: HALLUCINATION, AUDITORY
     Route: 048
     Dates: start: 2004
  26. SEROQUEL [Suspect]
     Active Substance: QUETIAPINE FUMARATE
     Indication: SCHIZOPHRENIA
     Dosage: 200 MG IN THE MORNING, 400 MG AT AFTERNOON
     Route: 048
     Dates: start: 2004
  27. SEROQUEL [Suspect]
     Active Substance: QUETIAPINE FUMARATE
     Indication: HALLUCINATION, AUDITORY
     Dosage: 200 MG IN THE MORNING, 400 MG AT AFTERNOON
     Route: 048
     Dates: start: 2004
  28. SEROQUEL [Suspect]
     Active Substance: QUETIAPINE FUMARATE
     Indication: ANXIETY
     Dosage: 200 MG IN THE MORNING, 400 MG AT AFTERNOON
     Route: 048
     Dates: start: 2004

REACTIONS (17)
  - Increased appetite [Unknown]
  - Orthostatic hypotension [Recovered/Resolved]
  - Muscle spasms [Unknown]
  - Fear [Unknown]
  - Insomnia [Unknown]
  - Muscle twitching [Unknown]
  - Hypotension [Unknown]
  - Dry mouth [Unknown]
  - Depression [Unknown]
  - Somnolence [Unknown]
  - Seizure [Unknown]
  - Skin discolouration [Unknown]
  - Weight increased [Unknown]
  - Constipation [Unknown]
  - Syncope [Unknown]
  - Feeling abnormal [Unknown]
  - Dizziness [Unknown]

NARRATIVE: CASE EVENT DATE: 2004
